FAERS Safety Report 13078086 (Version 1)
Quarter: 2017Q1

REPORT INFORMATION
  Report Type: Report from Study
  Country: US (occurrence: US)
  Receive Date: 20170102
  Receipt Date: 20170102
  Transmission Date: 20170428
  Serious: No
  Sender: FDA-Public Use
  Company Number: PHEH2016US034054

PATIENT
  Age: 31 Year
  Sex: Male

DRUGS (1)
  1. AFINITOR [Suspect]
     Active Substance: EVEROLIMUS
     Indication: ACUTE MYELOID LEUKAEMIA
     Dosage: 10 MG, QD
     Route: 048
     Dates: start: 20150731

REACTIONS (4)
  - Eating disorder [Unknown]
  - Oral herpes [Recovered/Resolved]
  - Oral pain [Recovered/Resolved]
  - Pyrexia [Unknown]

NARRATIVE: CASE EVENT DATE: 20161213
